FAERS Safety Report 9189525 (Version 1)
Quarter: 2013Q1

REPORT INFORMATION
  Report Type: Report from Study
  Country: US (occurrence: US)
  Receive Date: 20130326
  Receipt Date: 20130326
  Transmission Date: 20140127
  Serious: Yes (Hospitalization)
  Sender: FDA-Public Use
  Company Number: US-JNJFOC-20130213929

PATIENT
  Age: 53 Year
  Sex: Male
  Weight: 91.31 kg

DRUGS (2)
  1. DOXORUBICIN HYDROCHLORIDE (DOXIL) [Suspect]
     Indication: MYCOSIS FUNGOIDES
     Route: 042
     Dates: start: 20101109, end: 20101109
  2. TARGRETIN [Suspect]
     Indication: MYCOSIS FUNGOIDES
     Route: 065

REACTIONS (1)
  - Cellulitis [Recovered/Resolved]
